FAERS Safety Report 23032716 (Version 2)
Quarter: 2023Q4

REPORT INFORMATION
  Report Type: Report from Study
  Country: US (occurrence: US)
  Receive Date: 20231005
  Receipt Date: 20231006
  Transmission Date: 20240110
  Serious: No
  Sender: FDA-Public Use
  Company Number: US-002147023-NVSC2023US212696

PATIENT
  Sex: Female
  Weight: 81.65 kg

DRUGS (1)
  1. COSENTYX [Suspect]
     Active Substance: SECUKINUMAB
     Indication: Psoriasis
     Dosage: UNK UNK, QMO
     Route: 058

REACTIONS (5)
  - Psoriasis [Unknown]
  - Pruritus [Unknown]
  - Skin haemorrhage [Unknown]
  - Skin fissures [Unknown]
  - Inappropriate schedule of product administration [Unknown]

NARRATIVE: CASE EVENT DATE: 20230101
